FAERS Safety Report 4330605-8 (Version None)
Quarter: 2004Q2

REPORT INFORMATION
  Report Type: 
  Country: None (occurrence: None)
  Receive Date: 20040402
  Receipt Date: 20040322
  Transmission Date: 20050107
  Serious: Yes (Hospitalization)
  Sender: FDA-Public Use
  Company Number: FR-BRISTOL-MYERS SQUIBB COMPANY-12538369

PATIENT
  Age: 45 Year
  Sex: Female

DRUGS (10)
  1. VASTEN [Suspect]
     Indication: HYPERLIPIDAEMIA
     Route: 048
     Dates: start: 20030601
  2. DI-ANTALVIC [Suspect]
     Indication: PAIN IN EXTREMITY
     Route: 048
     Dates: start: 20031201, end: 20031216
  3. GARDENAL [Suspect]
     Indication: EPILEPSY
     Dosage: ON THERAPY FOR OVER 10 YEARS
     Route: 048
     Dates: end: 20031210
  4. TEGRETOL [Suspect]
     Indication: EPILEPSY
     Route: 048
     Dates: end: 20031210
  5. URBANYL [Suspect]
     Indication: EPILEPSY
     Route: 048
  6. MOPRAL [Concomitant]
     Route: 048
     Dates: start: 20031201, end: 20031216
  7. COLCHICINE [Concomitant]
     Route: 048
  8. CHRONADALATE [Concomitant]
     Route: 048
  9. FRAXIPARINE [Concomitant]
     Dates: start: 20031201
  10. ASPEGIC 325 [Concomitant]
     Route: 048
     Dates: start: 20031201

REACTIONS (5)
  - AMMONIA INCREASED [None]
  - ANTICONVULSANT DRUG LEVEL INCREASED [None]
  - CHOLESTASIS [None]
  - ENCEPHALOPATHY [None]
  - TOE AMPUTATION [None]
